FAERS Safety Report 8180601-8 (Version None)
Quarter: 2012Q1

REPORT INFORMATION
  Report Type: 
  Country: None (occurrence: None)
  Receive Date: 20120302
  Receipt Date: 20120228
  Transmission Date: 20120608
  Serious: Yes (Hospitalization)
  Sender: FDA-Public Use
  Company Number: FR-ROCHE-1042286

PATIENT
  Sex: Male

DRUGS (10)
  1. ACETAMINOPHEN [Concomitant]
  2. PREDNISONE TAB [Concomitant]
     Route: 048
  3. VALACYCLOVIR HYDROCHLORIDE [Concomitant]
  4. MABTHERA [Suspect]
     Indication: WALDENSTROM'S MACROGLOBULINAEMIA
     Route: 042
     Dates: start: 20120111, end: 20120131
  5. CALCIUM CARBONATE [Concomitant]
  6. BACTRIM DS [Concomitant]
  7. NPLATE [Concomitant]
  8. POLARAMINE [Concomitant]
     Route: 042
  9. POTASSIUM CHLORIDE [Concomitant]
  10. FOSAMAX [Concomitant]

REACTIONS (2)
  - ACUTE PULMONARY OEDEMA [None]
  - CARDIAC FAILURE [None]
